FAERS Safety Report 6775007-X (Version None)
Quarter: 2010Q2

REPORT INFORMATION
  Report Type: 
  Country: None (occurrence: None)
  Receive Date: 20100617
  Receipt Date: 20100610
  Transmission Date: 20101027
  Serious: Yes (Other)
  Sender: FDA-Public Use
  Company Number: A0864302A

PATIENT
  Age: 23 Year
  Sex: Female

DRUGS (2)
  1. VENTOLIN [Suspect]
     Route: 055
     Dates: start: 20091001
  2. LUTERA [Concomitant]

REACTIONS (3)
  - ASTHMA [None]
  - DRUG INEFFECTIVE [None]
  - PRODUCT QUALITY ISSUE [None]
